FAERS Safety Report 21831008 (Version 1)
Quarter: 2023Q1

REPORT INFORMATION
  Report Type: Spontaneous
  Country: BR (occurrence: None)
  Receive Date: 20230106
  Receipt Date: 20230106
  Transmission Date: 20230418
  Serious: Yes (Other)
  Sender: FDA-Public Use
  Company Number: 2023A001411

PATIENT
  Age: 19499 Day
  Sex: Male

DRUGS (4)
  1. BRILINTA [Suspect]
     Active Substance: TICAGRELOR
     Indication: Cardiac disorder
     Dosage: A TABLET
     Route: 048
     Dates: start: 20221226, end: 20221226
  2. BRILINTA [Suspect]
     Active Substance: TICAGRELOR
     Indication: Infarction
     Dosage: A TABLET
     Route: 048
     Dates: start: 20221226, end: 20221226
  3. BRILINTA [Suspect]
     Active Substance: TICAGRELOR
     Indication: Cardiac disorder
     Dosage: TWO TABLETS
     Route: 048
     Dates: start: 20221225, end: 20221226
  4. BRILINTA [Suspect]
     Active Substance: TICAGRELOR
     Indication: Infarction
     Dosage: TWO TABLETS
     Route: 048
     Dates: start: 20221225, end: 20221226

REACTIONS (4)
  - Myocardial infarction [Unknown]
  - Toxicity to various agents [Recovered/Resolved with Sequelae]
  - Drug hypersensitivity [Not Recovered/Not Resolved]
  - Pruritus [Not Recovered/Not Resolved]

NARRATIVE: CASE EVENT DATE: 20221225
